FAERS Safety Report 9801295 (Version 1)
Quarter: 2014Q1

REPORT INFORMATION
  Report Type: Spontaneous
  Country: US (occurrence: US)
  Receive Date: 20140107
  Receipt Date: 20140107
  Transmission Date: 20141002
  Serious: No
  Sender: FDA-Public Use
  Company Number: US-GLAXOSMITHKLINE-A1043909A

PATIENT
  Age: 62 Year
  Sex: Female

DRUGS (2)
  1. BENLYSTA [Suspect]
     Route: 042
  2. MULTIPLE MEDICATIONS [Concomitant]

REACTIONS (2)
  - Nail disorder [Unknown]
  - Onychomycosis [Unknown]
